FAERS Safety Report 9843606 (Version 1)
Quarter: 2013Q4

REPORT INFORMATION
  Report Type: Spontaneous
  Country: US (occurrence: None)
  Receive Date: 20131223
  Receipt Date: 20131223
  Transmission Date: 20140711
  Serious: No
  Sender: FDA-Public Use
  Company Number: 222179LEO

PATIENT
  Age: 59 Year
  Sex: Female

DRUGS (4)
  1. PICATO (0.015 %, GEL) [Suspect]
     Indication: ACTINIC KERATOSIS
     Dosage: (1 IN 1 D), TOPICAL
     Route: 061
     Dates: start: 20130531
  2. SIMVASTATIN (SIMVASTATIN) [Concomitant]
  3. ADVAIR (SERETIDE) [Concomitant]
  4. SINGULAIR (MONTELUKAST) 10MG [Concomitant]

REACTIONS (1)
  - Application site vesicles [None]
